FAERS Safety Report 19173416 (Version 6)
Quarter: 2021Q2

REPORT INFORMATION
  Report Type: Report from Study
  Country: NL (occurrence: NL)
  Receive Date: 20210423
  Receipt Date: 20210630
  Transmission Date: 20210717
  Serious: Yes (Hospitalization)
  Sender: FDA-Public Use
  Company Number: NL-ROCHE-2778637

PATIENT
  Age: 71 Year
  Sex: Female
  Weight: 73.65 kg

DRUGS (13)
  1. ATEZOLIZUMAB. [Suspect]
     Active Substance: ATEZOLIZUMAB
     Indication: SMALL CELL LUNG CANCER EXTENSIVE STAGE
     Dosage: ON 08/FEB/2021, SHE RECEIVED MOST RECENT DOSE OF ATEZOLIZUMAB 1200 MG PRIOR TO PERICARDIAL EFFUSION
     Route: 042
     Dates: start: 20200902
  2. CARBOPLATIN. [Suspect]
     Active Substance: CARBOPLATIN
     Indication: SMALL CELL LUNG CANCER EXTENSIVE STAGE
     Dosage: ON 19/NOV/2020, SHE RECEIVED MOST RECENT DOSE OF CARBOPLATIN 450 MG PRIOR TO ADVERSE EVENT.
     Route: 042
     Dates: start: 20200902
  3. PREDNISOLONE. [Concomitant]
     Active Substance: PREDNISOLONE
     Route: 048
     Dates: start: 20210301
  4. METOCLOPRAMIDE. [Concomitant]
     Active Substance: METOCLOPRAMIDE
     Indication: NAUSEA
     Dates: start: 20200910
  5. MACROGOL [Concomitant]
     Active Substance: POLYETHYLENE GLYCOLS
     Indication: CONSTIPATION
     Route: 048
     Dates: start: 20200821
  6. CEFUROXIME. [Concomitant]
     Active Substance: CEFUROXIME
     Indication: C-REACTIVE PROTEIN INCREASED
     Route: 042
     Dates: start: 20210228
  7. VITAMINE D [Concomitant]
     Active Substance: CHOLECALCIFEROL
     Indication: PROPHYLAXIS
     Route: 048
     Dates: start: 2015
  8. PARACETAMOL [Concomitant]
     Active Substance: ACETAMINOPHEN
     Indication: PAIN
     Route: 048
     Dates: start: 20200821
  9. LEVOTHYROXINE. [Concomitant]
     Active Substance: LEVOTHYROXINE
     Route: 048
     Dates: start: 1996
  10. OXYCODONE [Concomitant]
     Active Substance: OXYCODONE
     Indication: PAIN
     Route: 048
     Dates: start: 20200821
  11. PLACEBO [Suspect]
     Active Substance: UNSPECIFIED INGREDIENT
     Indication: SMALL CELL LUNG CANCER EXTENSIVE STAGE
     Dosage: ON 08/FEB/2021, SHE RECEIVED MOST RECENT DOSE OF PLACEBO PRIOR TO ADVERSE EVENT.
     Route: 042
     Dates: start: 20200902
  12. ETOPOSIDE. [Suspect]
     Active Substance: ETOPOSIDE
     Indication: SMALL CELL LUNG CANCER EXTENSIVE STAGE
     Dosage: DAYS 1, 2 AND 3 OF EACH 21?DAY CYCLE FOR 4 CYCLES. ?ON 21/NOV/2020, SHE RECEIVED MOST RECENT DOSE OF
     Route: 042
     Dates: start: 20200902
  13. PROBIOTICA [Concomitant]
     Active Substance: PROBIOTICS NOS
     Indication: PROPHYLAXIS
     Route: 048

REACTIONS (2)
  - Cardiac failure [Recovered/Resolved]
  - Pericardial effusion [Recovered/Resolved]

NARRATIVE: CASE EVENT DATE: 20210224
